FAERS Safety Report 6993177-5 (Version None)
Quarter: 2010Q3

REPORT INFORMATION
  Report Type: 
  Country: None (occurrence: None)
  Receive Date: 20100917
  Receipt Date: 20070905
  Transmission Date: 20110219
  Serious: Yes (Other)
  Sender: FDA-Public Use
  Company Number: US-ASTRAZENECA-2007UW04079

PATIENT
  Age: 466 Month
  Sex: Male
  Weight: 95.7 kg

DRUGS (15)
  1. SEROQUEL [Suspect]
     Indication: SCHIZOPHRENIA
     Dosage: 50-600 MG
     Route: 048
     Dates: start: 20020108
  2. SEROQUEL [Suspect]
     Indication: PSYCHOTIC DISORDER
     Dosage: 50-600 MG
     Route: 048
     Dates: start: 20020108
  3. SEROQUEL [Suspect]
     Route: 048
  4. SEROQUEL [Suspect]
     Route: 048
  5. HALDOL [Concomitant]
  6. NAVANE [Concomitant]
     Indication: PSYCHOTIC DISORDER
     Dosage: 5-10 MG, AT BEDTIME
     Dates: start: 20030203
  7. RISPERDAL [Concomitant]
     Indication: PSYCHOTIC DISORDER
     Dates: start: 20030527
  8. THORAZINE [Concomitant]
     Dates: start: 19910101
  9. BUSPAR [Concomitant]
     Route: 048
     Dates: start: 20020108
  10. NEURONTIN [Concomitant]
     Route: 048
     Dates: start: 20020108
  11. LOPID [Concomitant]
     Route: 048
     Dates: start: 20020108
  12. PREVACID [Concomitant]
     Route: 048
     Dates: start: 20020108
  13. ATIVAN [Concomitant]
     Dosage: 0.5-1 MG, TID
     Dates: start: 20020108
  14. ZOLOFT [Concomitant]
     Route: 048
     Dates: start: 20020108
  15. COGENTIN [Concomitant]
     Dosage: 2 MG, Q12 TH PRN
     Route: 048
     Dates: start: 20020108

REACTIONS (3)
  - DIABETES MELLITUS [None]
  - TARDIVE DYSKINESIA [None]
  - TYPE 2 DIABETES MELLITUS [None]
